FAERS Safety Report 25262628 (Version 1)
Quarter: 2025Q2

REPORT INFORMATION
  Report Type: Spontaneous
  Country: NL (occurrence: NL)
  Receive Date: 20250502
  Receipt Date: 20250502
  Transmission Date: 20250716
  Serious: No
  Sender: ALKEM
  Company Number: NL-ALKEM LABORATORIES LIMITED-NL-ALKEM-2024-15694

PATIENT
  Age: 10 Year
  Sex: Female

DRUGS (1)
  1. LIDOCAINE [Suspect]
     Active Substance: LIDOCAINE
     Indication: Abdominal pain
     Route: 065

REACTIONS (1)
  - Rash [Unknown]
